FAERS Safety Report 11566955 (Version 1)
Quarter: 2015Q3

REPORT INFORMATION
  Report Type: Spontaneous
  Country: US (occurrence: US)
  Receive Date: 20150916
  Receipt Date: 20150916
  Transmission Date: 20151125
  Serious: No
  Sender: FDA-Public Use
  Company Number: US-ELI_LILLY_AND_COMPANY-US200907000174

PATIENT
  Age: 62 Year
  Sex: Female

DRUGS (1)
  1. FORTEO [Suspect]
     Active Substance: TERIPARATIDE
     Dates: start: 20090615

REACTIONS (8)
  - Gastrointestinal pain [Unknown]
  - Muscle twitching [Recovered/Resolved]
  - Muscle spasms [Unknown]
  - Abdominal pain upper [Unknown]
  - Headache [Unknown]
  - Retching [Unknown]
  - Malaise [Unknown]
  - Nausea [Unknown]

NARRATIVE: CASE EVENT DATE: 2009
